FAERS Safety Report 5140297-6 (Version None)
Quarter: 2006Q4

REPORT INFORMATION
  Report Type: 
  Country: None (occurrence: None)
  Receive Date: 20061031
  Receipt Date: 20061012
  Transmission Date: 20070319
  Serious: Yes (Life-Threatening, Other)
  Sender: FDA-Public Use
  Company Number: GB-GLAXOSMITHKLINE-B0441920A

PATIENT
  Age: 33 Year
  Sex: Female
  Weight: 94.5 kg

DRUGS (2)
  1. SEROXAT [Suspect]
     Dosage: 30MG PER DAY
     Route: 048
     Dates: start: 20041101, end: 20061002
  2. NO CONCURRENT MEDICATION [Concomitant]

REACTIONS (3)
  - DRUG EXPOSURE DURING PREGNANCY [None]
  - DRUG WITHDRAWAL SYNDROME [None]
  - SUICIDAL IDEATION [None]
